FAERS Safety Report 16956669 (Version 1)
Quarter: 2019Q4

REPORT INFORMATION
  Report Type: Other
  Country: CA (occurrence: CA)
  Receive Date: 20191024
  Receipt Date: 20191024
  Transmission Date: 20200122
  Serious: Yes (Hospitalization, Other)
  Sender: FDA-Public Use
  Company Number: CA-PFIZER INC-2019454552

PATIENT
  Age: 68 Year
  Sex: Male

DRUGS (8)
  1. CARBIDOPA. [Concomitant]
     Active Substance: CARBIDOPA
     Dosage: UNK
  2. PHENYTOIN. [Suspect]
     Active Substance: PHENYTOIN
     Indication: TONIC CONVULSION
     Dosage: 75 MG, 1X/DAY
     Route: 065
  3. LEVETIRACETAM. [Suspect]
     Active Substance: LEVETIRACETAM
     Dosage: 1500 MG, 2X/DAY
     Route: 065
  4. 5-HYDROXYTRYPTOPHAN [Suspect]
     Active Substance: OXITRIPTAN
     Indication: TONIC CONVULSION
     Dosage: 400 MG, 3X/DAY
     Route: 065
  5. VALPROIC ACID. [Suspect]
     Active Substance: VALPROIC ACID
     Indication: TONIC CONVULSION
     Dosage: 650 MG, 4X/DAY
     Route: 065
  6. VALPROIC ACID. [Suspect]
     Active Substance: VALPROIC ACID
     Dosage: 650 MG, 4X/DAY
     Route: 065
  7. PHENYTOIN. [Suspect]
     Active Substance: PHENYTOIN
     Dosage: 125 MG, 1X/DAY
     Route: 065
  8. LEVETIRACETAM. [Suspect]
     Active Substance: LEVETIRACETAM
     Indication: TONIC CONVULSION
     Dosage: 1500 MG, 2X/DAY

REACTIONS (2)
  - Serotonin syndrome [Unknown]
  - Somnolence [Unknown]
